FAERS Safety Report 19093986 (Version 14)
Quarter: 2021Q3

REPORT INFORMATION
  Report Type: Report from Study
  Country: CN (occurrence: CN)
  Receive Date: 20210405
  Receipt Date: 20210828
  Transmission Date: 20211014
  Serious: Yes (Hospitalization)
  Sender: FDA-Public Use
  Company Number: CN-ROCHE-2796984

PATIENT
  Age: 68 Year
  Sex: Male
  Weight: 70 kg

DRUGS (91)
  1. ATEZOLIZUMAB. [Suspect]
     Active Substance: ATEZOLIZUMAB
     Indication: MYELOSUPPRESSION
  2. POTASSIUM CHLORIDE. [Concomitant]
     Active Substance: POTASSIUM CHLORIDE
     Dosage: SUSTAINED?RELEASE TABLETS
     Dates: start: 20210316, end: 20210317
  3. TANSULOSINA [Concomitant]
     Dosage: SUSTAINED RELEASE CAPSULE
     Dates: start: 20210318, end: 20210318
  4. BACILLUS LICHENIFORMIS CAPSULE,LIVE [Concomitant]
     Dates: start: 20210325, end: 20210329
  5. SPIRONOLACTONE. [Concomitant]
     Active Substance: SPIRONOLACTONE
     Dates: start: 20210328, end: 20210401
  6. DEXAMETHASONE SODIUM PHOSPHATE. [Concomitant]
     Active Substance: DEXAMETHASONE SODIUM PHOSPHATE
     Dates: start: 20210608, end: 20210608
  7. NITROGLYCERIN. [Concomitant]
     Active Substance: NITROGLYCERIN
     Dates: start: 20210602, end: 20210602
  8. CEFUROXIME. [Concomitant]
     Active Substance: CEFUROXIME
     Dosage: PLUG CRUNCHING OF CORNFLAKES
     Route: 048
     Dates: start: 20210327, end: 20210327
  9. DAPAGLIFLOZIN. [Concomitant]
     Active Substance: DAPAGLIFLOZIN
     Indication: BLOOD GLUCOSE DECREASED
     Dates: start: 20210402
  10. CODEINE PHOSPHATE [Concomitant]
     Active Substance: CODEINE PHOSPHATE
     Dates: start: 20210409, end: 20210409
  11. TRIMETAZIDINE HYDROCHLORIDE [Concomitant]
     Active Substance: TRIMETAZIDINE DIHYDROCHLORIDE
     Dates: start: 20210518
  12. FORXIGA [Concomitant]
     Active Substance: DAPAGLIFLOZIN
     Indication: BLOOD GLUCOSE DECREASED
     Dates: start: 20210402
  13. FUROSEMIDE. [Concomitant]
     Active Substance: FUROSEMIDE
     Dates: start: 20210608, end: 20210608
  14. NIFEDIPINE SUSTAINED RELEASE TABLETS (I) [Concomitant]
     Dates: start: 20210407, end: 20210407
  15. LANSOPRAZOLE. [Concomitant]
     Active Substance: LANSOPRAZOLE
     Dates: start: 20210320, end: 20210320
  16. POLYENE PHOSPHATIDYLCHOLINE [Concomitant]
     Active Substance: PHOSPHOLIPID
     Dates: start: 20210324, end: 20210329
  17. NIFEDIPINE. [Concomitant]
     Active Substance: NIFEDIPINE
     Dosage: SUSTAIN?RELEASED TABLET
     Dates: start: 20210407, end: 20210407
  18. NIFEDIPINE. [Concomitant]
     Active Substance: NIFEDIPINE
     Dates: start: 20210608, end: 20210608
  19. CEFUROXIME. [Concomitant]
     Active Substance: CEFUROXIME
     Dosage: PLUG CRUNCHING OF CORNFLAKES
     Route: 048
     Dates: start: 20210322, end: 20210322
  20. DIFORMIN [Concomitant]
     Active Substance: METFORMIN HYDROCHLORIDE
     Indication: BLOOD GLUCOSE DECREASED
     Dates: start: 2013, end: 20210515
  21. VALSARTAN. [Concomitant]
     Active Substance: VALSARTAN
     Dates: start: 20210402, end: 20210403
  22. FUROSEMIDE. [Concomitant]
     Active Substance: FUROSEMIDE
     Dates: start: 20210401
  23. ZOLPIDEM TARTRATE. [Concomitant]
     Active Substance: ZOLPIDEM TARTRATE
     Dates: start: 20210602, end: 20210602
  24. ASPIRIN ENTERIC?COATED [Concomitant]
     Route: 048
     Dates: start: 20210320, end: 20210320
  25. SPIRONOLACTONE. [Concomitant]
     Active Substance: SPIRONOLACTONE
     Dates: start: 20210402
  26. DEXAMETHASONE SODIUM PHOSPHATE. [Concomitant]
     Active Substance: DEXAMETHASONE SODIUM PHOSPHATE
     Dates: start: 20210506, end: 20210506
  27. NITROGLYCERIN. [Concomitant]
     Active Substance: NITROGLYCERIN
     Dates: start: 20210319, end: 20210319
  28. CEFUROXIME. [Concomitant]
     Active Substance: CEFUROXIME
     Dosage: PLUG CRUNCHING OF CORNFLAKES
     Route: 048
     Dates: start: 20210319, end: 20210321
  29. CEFUROXIME. [Concomitant]
     Active Substance: CEFUROXIME
     Dosage: PLUG CRUNCHING OF CORNFLAKES
     Route: 048
     Dates: start: 20210325, end: 20210325
  30. VALSARTAN. [Concomitant]
     Active Substance: VALSARTAN
     Dates: start: 20210407, end: 20210407
  31. ISOSORBIDE MONONITRATE. [Concomitant]
     Active Substance: ISOSORBIDE MONONITRATE
     Route: 048
     Dates: start: 20210320, end: 20210320
  32. INSULIN ASPART [Concomitant]
     Active Substance: INSULIN ASPART
     Indication: BLOOD GLUCOSE DECREASED
     Dates: start: 20210515
  33. NICODIL [Concomitant]
     Dates: start: 20210518
  34. PLACEBO [Suspect]
     Active Substance: UNSPECIFIED INGREDIENT
     Indication: SMALL CELL LUNG CANCER
     Dosage: ON 16/MAR/2021, HE RECEIVED MOST RECENT DOSE OF BLINDED MTIG 7192A PRIOR TO EVENT ONSET.
     Route: 042
     Dates: start: 20210316
  35. ETOPOSIDE. [Suspect]
     Active Substance: ETOPOSIDE
     Indication: SMALL CELL LUNG CANCER
     Dosage: ON 18/MAR/2021, HE RECEIVED MOST RECENT DOSE OF (160 MG) OF ETOPOSIDE PRIOR TO EVENT ONSET.?ON 08/MA
     Route: 042
     Dates: start: 20210316
  36. FUROSEMIDE. [Concomitant]
     Active Substance: FUROSEMIDE
     Route: 065
     Dates: start: 20210316, end: 20210316
  37. NIFEDIPINE SUSTAINED RELEASE TABLETS (I) [Concomitant]
     Indication: BLOOD PRESSURE MEASUREMENT
     Dates: start: 20210317, end: 20210324
  38. TROPISETRON HYDROCHLORIDE [Concomitant]
     Active Substance: TROPISETRON HYDROCHLORIDE
     Dates: start: 20210407, end: 20210409
  39. NIFEDIPINE. [Concomitant]
     Active Substance: NIFEDIPINE
     Indication: BLOOD PRESSURE MEASUREMENT
     Dates: start: 20210317, end: 20210317
  40. METHOCLOPRAMIDE [Concomitant]
     Active Substance: METOCLOPRAMIDE HYDROCHLORIDE
     Dates: start: 20210324, end: 20210325
  41. RECOMBINANT HUMAN THROMBOPOIETIN [Concomitant]
     Active Substance: THROMBOPOIETIN
     Dates: start: 20210401, end: 20210403
  42. ISOSORBIDE MONONITRATE. [Concomitant]
     Active Substance: ISOSORBIDE MONONITRATE
     Route: 048
     Dates: start: 20210320, end: 20210324
  43. ISOSORBIDE MONONITRATE. [Concomitant]
     Active Substance: ISOSORBIDE MONONITRATE
     Dates: start: 20210401
  44. OMEPRAZOLE SODIUM [Concomitant]
     Active Substance: OMEPRAZOLE SODIUM
     Dates: start: 20210602, end: 20210602
  45. NOVOMIX [Concomitant]
     Active Substance: INSULIN ASPART
     Indication: BLOOD GLUCOSE DECREASED
     Dosage: 30 PENFILL
     Dates: start: 20210515
  46. RECOMBINANT HUMAN GRANULOCYTE STIMULATING FACTOR (UNK INGREDIENTS) [Concomitant]
  47. FUROSEMIDE. [Concomitant]
     Active Substance: FUROSEMIDE
     Dates: start: 20210319, end: 20210319
  48. ZOLPIDEM TARTRATE. [Concomitant]
     Active Substance: ZOLPIDEM TARTRATE
     Dates: start: 20210310, end: 20210324
  49. OXYCODONE [Concomitant]
     Active Substance: OXYCODONE
     Indication: ANALGESIC THERAPY
     Dates: start: 20210315, end: 20210326
  50. IMIPENEM AND CILASTATIN SODIUM [Concomitant]
     Active Substance: CILASTATIN SODIUM\IMIPENEM
     Dates: start: 20210324, end: 20210330
  51. GLUTATHIONE [Concomitant]
     Active Substance: GLUTATHIONE
     Dates: start: 20210324, end: 20210329
  52. BACILLUS LICHENIFORMIS CAPSULE,LIVE [Concomitant]
     Dates: start: 20210325, end: 20210325
  53. TROPISETRON HYDROCHLORIDE [Concomitant]
     Active Substance: TROPISETRON HYDROCHLORIDE
     Dates: start: 20210506, end: 20210506
  54. DEXAMETHASONE SODIUM PHOSPHATE. [Concomitant]
     Active Substance: DEXAMETHASONE SODIUM PHOSPHATE
     Dates: start: 20210407, end: 20210407
  55. NITROGLYCERIN. [Concomitant]
     Active Substance: NITROGLYCERIN
     Dates: start: 20210610, end: 20210610
  56. RECOMBINANT HUMAN GRANULOCYTE COLONY STIMULATING FACTOR [Concomitant]
     Active Substance: GRANULOCYTE COLONY-STIMULATING FACTOR NOS
     Dosage: DOSE? 150 UG
     Route: 058
     Dates: start: 20210326, end: 20210326
  57. PROMETHAZINE HYDROCHLORIDE. [Concomitant]
     Active Substance: PROMETHAZINE HYDROCHLORIDE
     Dates: start: 20210328, end: 20210328
  58. CODEINE PHOSPHATE [Concomitant]
     Active Substance: CODEINE PHOSPHATE
     Dates: start: 20210407, end: 20210407
  59. CARBOPLATIN. [Suspect]
     Active Substance: CARBOPLATIN
     Indication: SMALL CELL LUNG CANCER
     Dosage: ON 16/MAR/2021, HE RECEIVED MOST RECENT DOSE OF (540 MG) OF CARBOPLATIN PRIOR TO EVENT ONSET.?ON 06/
     Route: 042
     Dates: start: 20210316
  60. FUROSEMIDE. [Concomitant]
     Active Substance: FUROSEMIDE
     Dates: start: 20210316, end: 20210316
  61. ATORVASTATIN CALCIUM. [Concomitant]
     Active Substance: ATORVASTATIN CALCIUM
     Route: 048
     Dates: start: 20210320, end: 20210324
  62. SPIRONOLACTONE. [Concomitant]
     Active Substance: SPIRONOLACTONE
     Route: 048
     Dates: start: 20210326, end: 20210327
  63. APREPITANT. [Concomitant]
     Active Substance: APREPITANT
     Dates: start: 20210316, end: 20210318
  64. APREPITANT. [Concomitant]
     Active Substance: APREPITANT
     Dates: start: 20210407, end: 20210409
  65. FINASTERIDE. [Concomitant]
     Active Substance: FINASTERIDE
     Indication: BENIGN PROSTATIC HYPERPLASIA
     Dates: start: 20210317, end: 20210317
  66. DIPHENHYDRAMINE HYDROCHLORIDE. [Concomitant]
     Active Substance: DIPHENHYDRAMINE HYDROCHLORIDE
     Dates: start: 20210323, end: 20210323
  67. ESTAZOLAM. [Concomitant]
     Active Substance: ESTAZOLAM
     Dates: start: 20210324, end: 20210324
  68. ASPIRIN. [Concomitant]
     Active Substance: ASPIRIN
     Dates: start: 20210518
  69. ATEZOLIZUMAB. [Suspect]
     Active Substance: ATEZOLIZUMAB
     Indication: SMALL CELL LUNG CANCER
     Dosage: ON 16/MAR/2021, HE RECEIVED MOST RECENT DOSE OF (1200 MG) OF ATEZOLIZUMAB PRIOR TO EVENT ONSET.?ON 0
     Route: 042
     Dates: start: 20210316
  70. FUROSEMIDE. [Concomitant]
     Active Substance: FUROSEMIDE
     Dates: start: 20210407, end: 20210407
  71. ASPIRIN ENTERIC?COATED [Concomitant]
     Route: 048
     Dates: start: 20210319, end: 20210324
  72. POTASSIUM CHLORIDE. [Concomitant]
     Active Substance: POTASSIUM CHLORIDE
     Dosage: SUSTAINED?RELEASE TABLETS
     Dates: start: 20210319, end: 20210326
  73. LANSOPRAZOLE. [Concomitant]
     Active Substance: LANSOPRAZOLE
     Route: 048
     Dates: start: 20210320, end: 20210326
  74. SPIRONOLACTONE. [Concomitant]
     Active Substance: SPIRONOLACTONE
     Route: 048
     Dates: start: 20210320, end: 20210322
  75. APREPITANT. [Concomitant]
     Active Substance: APREPITANT
     Dates: start: 20210506, end: 20210508
  76. TROPISETRON HYDROCHLORIDE [Concomitant]
     Active Substance: TROPISETRON HYDROCHLORIDE
     Dates: start: 20210316, end: 20210318
  77. DEXAMETHASONE SODIUM PHOSPHATE. [Concomitant]
     Active Substance: DEXAMETHASONE SODIUM PHOSPHATE
     Dates: start: 20210316, end: 20210316
  78. METHOCLOPRAMIDE [Concomitant]
     Active Substance: METOCLOPRAMIDE HYDROCHLORIDE
     Dates: start: 20210319, end: 20210319
  79. RECOMBINANT HUMAN THROMBOPOIETIN [Concomitant]
     Active Substance: THROMBOPOIETIN
     Route: 058
     Dates: start: 20210329, end: 20210331
  80. GLIMEPIRIDE. [Concomitant]
     Active Substance: GLIMEPIRIDE
     Dates: start: 2013
  81. COMPOUND LIQUORICE [Concomitant]
     Dates: start: 20210407, end: 20210407
  82. ROSUVASTATIN. [Concomitant]
     Active Substance: ROSUVASTATIN
     Dates: start: 20210515
  83. BISOPROLOL [Concomitant]
     Active Substance: BISOPROLOL
     Dates: start: 20210518
  84. TROPISETRON HYDROCHLORIDE [Concomitant]
     Active Substance: TROPISETRON HYDROCHLORIDE
     Dates: start: 20210608, end: 20210610
  85. FUROSEMIDE. [Concomitant]
     Active Substance: FUROSEMIDE
     Dates: start: 20210408, end: 20210408
  86. FUROSEMIDE. [Concomitant]
     Active Substance: FUROSEMIDE
     Dates: start: 20210506, end: 20210506
  87. TANSULOSINA [Concomitant]
     Indication: BENIGN PROSTATIC HYPERPLASIA
     Dosage: SUSTAINED RELEASE CAPSULE
     Route: 048
     Dates: start: 20210322, end: 20210322
  88. MACROPHAGE COLONY?STIMULATING FACTOR FOR INJECTION (UNK INGREDIENTS) [Concomitant]
     Dates: start: 20210324, end: 20210326
  89. LACTULOSE. [Concomitant]
     Active Substance: LACTULOSE
     Route: 048
     Dates: start: 20210318, end: 20210318
  90. RECOMBINANT HUMAN ERYTHROPOIETIN [Concomitant]
     Active Substance: ERYTHROPOIETIN
     Dates: start: 20210429, end: 20210501
  91. ENTRESTO [Concomitant]
     Active Substance: SACUBITRIL\VALSARTAN
     Indication: BLOOD PRESSURE MEASUREMENT
     Dates: start: 20210403

REACTIONS (4)
  - Hyperthyroidism [Recovered/Resolved]
  - Cardiac failure [Recovered/Resolved]
  - Urinary retention [Recovered/Resolved]
  - Myelosuppression [Recovered/Resolved]

NARRATIVE: CASE EVENT DATE: 20210319
